FAERS Safety Report 14939062 (Version 2)
Quarter: 2018Q3

REPORT INFORMATION
  Report Type: Spontaneous
  Country: ES (occurrence: ES)
  Receive Date: 20180525
  Receipt Date: 20180703
  Transmission Date: 20181010
  Serious: Yes (Death, Hospitalization)
  Sender: FDA-Public Use
  Company Number: ES-ELI_LILLY_AND_COMPANY-ES201805009784

PATIENT
  Age: 73 Year
  Sex: Male

DRUGS (2)
  1. CARBOPLATINO [Suspect]
     Active Substance: CARBOPLATIN
     Indication: LUNG NEOPLASM MALIGNANT
     Dosage: UNK UNK, CYCLICAL
     Route: 042
     Dates: start: 20170202, end: 20170202
  2. PEMETREXED. [Suspect]
     Active Substance: PEMETREXED
     Indication: LUNG NEOPLASM MALIGNANT
     Dosage: 500 MG/M2, CYCLICAL
     Route: 042
     Dates: start: 20170202, end: 20170202

REACTIONS (2)
  - Haematemesis [Fatal]
  - Febrile neutropenia [Fatal]

NARRATIVE: CASE EVENT DATE: 20170208
